FAERS Safety Report 15695250 (Version 2)
Quarter: 2019Q4

REPORT INFORMATION
  Report Type: Spontaneous
  Country: US (occurrence: US)
  Receive Date: 20181206
  Receipt Date: 20191216
  Transmission Date: 20200122
  Serious: No
  Sender: FDA-Public Use
  Company Number: US-ENDO PHARMACEUTICALS INC-2018-042700

PATIENT
  Sex: Male
  Weight: 103.86 kg

DRUGS (7)
  1. XIAFLEX [Suspect]
     Active Substance: COLLAGENASE CLOSTRIDIUM HISTOLYTICUM
     Dosage: CYCLE TWO; INJECTION ONE
     Route: 026
     Dates: start: 20180606
  2. XIAFLEX [Suspect]
     Active Substance: COLLAGENASE CLOSTRIDIUM HISTOLYTICUM
     Dosage: CYCLE TWO; INJECTION TWO
     Route: 026
     Dates: start: 201806
  3. XIAFLEX [Suspect]
     Active Substance: COLLAGENASE CLOSTRIDIUM HISTOLYTICUM
     Dosage: CYCLE THREE; INJECTION TWO
     Route: 026
     Dates: start: 201809
  4. XIAFLEX [Suspect]
     Active Substance: COLLAGENASE CLOSTRIDIUM HISTOLYTICUM
     Dosage: CYCLE THREE; INJECTION ONE
     Route: 026
     Dates: start: 201809
  5. XIAFLEX [Suspect]
     Active Substance: COLLAGENASE CLOSTRIDIUM HISTOLYTICUM
     Dosage: CYCLE ONE; INJECTION TWO
     Route: 026
     Dates: start: 201805
  6. XIAFLEX [Suspect]
     Active Substance: COLLAGENASE CLOSTRIDIUM HISTOLYTICUM
     Indication: PEYRONIE^S DISEASE
     Dosage: UNK; FOURTH CYCLE; TWO INJECTIONS
     Route: 026
     Dates: end: 20181116
  7. XIAFLEX [Suspect]
     Active Substance: COLLAGENASE CLOSTRIDIUM HISTOLYTICUM
     Dosage: CYCLE ONE; INJECTION ONE
     Route: 026
     Dates: start: 201805

REACTIONS (3)
  - Wrong technique in product usage process [Unknown]
  - Injection site swelling [Recovered/Resolved]
  - Drug ineffective [Not Recovered/Not Resolved]

NARRATIVE: CASE EVENT DATE: 2018
